FAERS Safety Report 7770564-9 (Version None)
Quarter: 2011Q3

REPORT INFORMATION
  Report Type: 
  Country: None (occurrence: None)
  Receive Date: 20110922
  Receipt Date: 20110914
  Transmission Date: 20111222
  Serious: Yes (Hospitalization)
  Sender: FDA-Public Use
  Company Number: PHEH2011US04367

PATIENT
  Sex: Female

DRUGS (4)
  1. DIAZEPAM [Concomitant]
     Dosage: UNK UKN, UNK
  2. PREMARIN [Suspect]
     Dosage: UNK UKN, UNK
  3. NORVASC [Concomitant]
     Dosage: UNK UKN, UNK
  4. VIVELLE-DOT [Suspect]
     Dosage: 0.05 MG, TWICE WEEKLY
     Route: 062
     Dates: start: 20090301

REACTIONS (6)
  - MUSCLE SPASMS [None]
  - DIZZINESS [None]
  - HEART RATE IRREGULAR [None]
  - ABDOMINAL PAIN UPPER [None]
  - DIARRHOEA [None]
  - HEADACHE [None]
